FAERS Safety Report 8242329-5 (Version None)
Quarter: 2012Q1

REPORT INFORMATION
  Report Type: 
  Country: None (occurrence: None)
  Receive Date: 20120329
  Receipt Date: 20120319
  Transmission Date: 20120608
  Serious: Yes (Death, Congenital Anomaly, Other)
  Sender: FDA-Public Use
  Company Number: TR-ACCORD-012845

PATIENT

DRUGS (2)
  1. OXCARBAZEPINE [Suspect]
     Route: 064
  2. TOPIRAMATE [Suspect]
     Route: 064

REACTIONS (13)
  - LIMB MALFORMATION [None]
  - FOETAL DEATH [None]
  - SINGLE FUNCTIONAL KIDNEY [None]
  - OLIGOHYDRAMNIOS [None]
  - CARDIOMEGALY [None]
  - GASTROINTESTINAL MALFORMATION [None]
  - PERICARDIAL EFFUSION [None]
  - APLASIA [None]
  - ADACTYLY [None]
  - FOETAL EXPOSURE TIMING UNSPECIFIED [None]
  - CONGENITAL BLADDER ANOMALY [None]
  - CLEFT LIP AND PALATE [None]
  - RENAL HYPOPLASIA [None]
